FAERS Safety Report 5917614-X (Version None)
Quarter: 2008Q4

REPORT INFORMATION
  Report Type: 
  Country: None (occurrence: None)
  Receive Date: 20081014
  Receipt Date: 20081007
  Transmission Date: 20090506
  Serious: Yes (Other)
  Sender: FDA-Public Use
  Company Number: US-MERCK-0808USA04911

PATIENT

DRUGS (2)
  1. VYTORIN [Suspect]
     Route: 048
  2. INTRON [Suspect]
     Route: 065

REACTIONS (1)
  - APPENDICITIS [None]
